FAERS Safety Report 7346107-0 (Version None)
Quarter: 2011Q1

REPORT INFORMATION
  Report Type: 
  Country: None (occurrence: None)
  Receive Date: 20110311
  Receipt Date: 20091122
  Transmission Date: 20110831
  Serious: Yes (Death, Other)
  Sender: FDA-Public Use
  Company Number: US-BAYER-200939826NA

PATIENT
  Sex: Male
  Weight: 70.295 kg

DRUGS (13)
  1. LISINOPRIL [Concomitant]
     Dosage: 10 MG DAILY
     Route: 048
     Dates: start: 20040131
  2. LOPRESSOR [Concomitant]
     Dosage: 25 MG TWICE DAILY
     Route: 048
     Dates: start: 20040131
  3. ANCEF [Concomitant]
     Dosage: 2 G
     Route: 042
     Dates: start: 20040227, end: 20040227
  4. DECADRON [Concomitant]
     Dosage: 10 MG
     Route: 042
     Dates: start: 20040227, end: 20040227
  5. HEPARIN [Concomitant]
     Dosage: 21000 IU
     Route: 042
     Dates: start: 20040227, end: 20040227
  6. PROTAMINE SULFATE [Concomitant]
     Dosage: 500 MG
     Route: 042
     Dates: start: 20040227, end: 20040227
  7. DIPRIVAN [Concomitant]
     Dosage: UNK
     Route: 042
     Dates: start: 20040227
  8. TRASYLOL [Suspect]
     Indication: AORTIC VALVE REPLACEMENT
     Dosage: UNK
     Route: 042
     Dates: start: 20040227, end: 20040227
  9. GENTAMICIN [Concomitant]
     Dosage: 60 MG
     Route: 042
     Dates: start: 20040227
  10. DOPAMINE [Concomitant]
     Dosage: UNK
     Route: 042
     Dates: start: 20040227
  11. LASIX [Concomitant]
     Dosage: 40 MG DAILY
     Route: 048
     Dates: start: 20040201
  12. MAGNESIUM SULFATE [Concomitant]
     Dosage: 1 G
     Route: 042
     Dates: start: 20040227
  13. NIPRIDE [Concomitant]
     Dosage: UNK
     Route: 042
     Dates: start: 20040227

REACTIONS (13)
  - RENAL INJURY [None]
  - INJURY [None]
  - ANXIETY [None]
  - PAIN [None]
  - EMOTIONAL DISTRESS [None]
  - FEAR [None]
  - RENAL FAILURE [None]
  - UNEVALUABLE EVENT [None]
  - RENAL IMPAIRMENT [None]
  - MULTI-ORGAN FAILURE [None]
  - DEATH [None]
  - STRESS [None]
  - ANHEDONIA [None]
